FAERS Safety Report 4347299-8 (Version None)
Quarter: 2004Q2

REPORT INFORMATION
  Report Type: 
  Country: None (occurrence: None)
  Receive Date: 20040426
  Receipt Date: 20040426
  Transmission Date: 20050107
  Serious: Yes (Other)
  Sender: FDA-Public Use
  Company Number: None

PATIENT
  Age: 59 Year
  Sex: Female
  Weight: 68 kg

DRUGS (1)
  1. MEROPENEM [Suspect]
     Indication: PNEUMONIA
     Dosage: IV 1000 MG
     Dates: start: 20040406, end: 20040414

REACTIONS (1)
  - CONVULSION [None]
